FAERS Safety Report 19927096 (Version 1)
Quarter: 2021Q4

REPORT INFORMATION
  Report Type: Report from Study
  Country: DO (occurrence: DO)
  Receive Date: 20211007
  Receipt Date: 20211007
  Transmission Date: 20220303
  Serious: Yes (Hospitalization)
  Sender: FDA-Public Use
  Company Number: DO-NOVARTISPH-NVSC2021DO221955

PATIENT
  Age: 61 Year
  Sex: Female

DRUGS (1)
  1. SECUKINUMAB [Suspect]
     Active Substance: SECUKINUMAB
     Indication: Psoriasis
     Dosage: 300 MG, QMO
     Route: 058
     Dates: start: 20210714

REACTIONS (3)
  - Haematochezia [Recovering/Resolving]
  - Nervousness [Recovering/Resolving]
  - Excessive cerumen production [Unknown]

NARRATIVE: CASE EVENT DATE: 20210914
